FAERS Safety Report 16322992 (Version 3)
Quarter: 2019Q3

REPORT INFORMATION
  Report Type: Spontaneous
  Country: DE (occurrence: DE)
  Receive Date: 20190517
  Receipt Date: 20190725
  Transmission Date: 20191004
  Serious: Yes (Other)
  Sender: FDA-Public Use
  Company Number: DE-AUROBINDO-AUR-APL-2019-024279

PATIENT

DRUGS (1)
  1. RAMIPRIL PUREN 5 MG TABLET [Suspect]
     Active Substance: RAMIPRIL
     Indication: HYPERTENSION
     Dosage: 7.5 MILLIGRAM, DAILY
     Route: 048
     Dates: start: 201903, end: 201904

REACTIONS (5)
  - Product physical issue [Unknown]
  - Product substitution issue [Unknown]
  - Product quality issue [Unknown]
  - Drug ineffective [Recovered/Resolved]
  - Angina pectoris [Recovered/Resolved]
